FAERS Safety Report 8941920 (Version 2)
Quarter: 2013Q1

REPORT INFORMATION
  Report Type: Spontaneous
  Country: DE (occurrence: DE)
  Receive Date: 20121203
  Receipt Date: 20130118
  Transmission Date: 20140127
  Serious: Yes (Death, Hospitalization)
  Sender: FDA-Public Use
  Company Number: DE-009507513-1211DEU011619

PATIENT
  Age: 46 Year
  Sex: Male
  Weight: 115 kg

DRUGS (7)
  1. VICTRELIS [Suspect]
     Indication: HEPATITIS C
     Dosage: 800 MG, TID
     Route: 048
     Dates: start: 20111224, end: 20120304
  2. PEGINTRON [Suspect]
     Indication: HEPATITIS C
     Dosage: 150 MICROGRAM, QW
     Dates: start: 20111125, end: 20120304
  3. REBETOL [Suspect]
     Indication: HEPATITIS C
     Dosage: UP TO 1400 MILLIGRAM PER DAY,UNK
     Dates: start: 20111125, end: 201202
  4. REBETOL [Suspect]
     Dosage: 600 MG, QD
     Dates: start: 201202, end: 20120214
  5. LISINOPRIL [Concomitant]
     Indication: HYPERTENSION
     Dosage: 10 MG, UNK
  6. SOTALOL HYDROCHLORIDE [Concomitant]
     Indication: HYPERTENSION
     Dosage: 160 MG, UNK
  7. TRIAZID [Concomitant]
     Indication: HYPERTENSION
     Dosage: 50/25, UNK

REACTIONS (3)
  - Aspiration [Fatal]
  - Anaemia [Unknown]
  - Renal failure [Unknown]
